FAERS Safety Report 15949501 (Version 1)
Quarter: 2019Q1

REPORT INFORMATION
  Report Type: Spontaneous
  Country: US (occurrence: US)
  Receive Date: 20190211
  Receipt Date: 20190211
  Transmission Date: 20190417
  Serious: No
  Sender: FDA-Public Use
  Company Number: US-PERRIGO-18US014430

PATIENT
  Age: 64 Year
  Sex: Female
  Weight: 56.69 kg

DRUGS (2)
  1. IBUPROFEN. [Suspect]
     Active Substance: IBUPROFEN
     Indication: HEADACHE
     Dosage: 10 MG, PRN
     Route: 061
  2. IBUPROFEN. [Suspect]
     Active Substance: IBUPROFEN
     Dosage: 10 MG, QD
     Route: 061
     Dates: start: 20181203, end: 20181207

REACTIONS (2)
  - Product administered to patient of inappropriate age [Recovered/Resolved]
  - Incorrect product administration duration [Recovered/Resolved]

NARRATIVE: CASE EVENT DATE: 20181206
